FAERS Safety Report 24079994 (Version 1)
Quarter: 2024Q3

REPORT INFORMATION
  Report Type: Spontaneous
  Country: RU (occurrence: RU)
  Receive Date: 20240711
  Receipt Date: 20240711
  Transmission Date: 20241016
  Serious: Yes (Other)
  Sender: ABBVIE
  Company Number: RU-ABBOTT-2024A-1383657

PATIENT
  Age: 5 Year
  Sex: Female
  Weight: 18 kg

DRUGS (3)
  1. PANCRELIPASE [Suspect]
     Active Substance: PANCRELIPASE
     Indication: Cystic fibrosis
     Dosage: DAILY INTAKE: 160 IU (16 CAPSULES), 4 CAPSULES PER DOSE
     Route: 048
     Dates: start: 20230807, end: 20230809
  2. URSODIOL [Concomitant]
     Active Substance: URSODIOL
     Indication: Product used for unknown indication
     Dosage: THE PATIENT TAKES IT FOR A LONG TIME
     Route: 048
     Dates: start: 20210101
  3. SINGULAIR [Concomitant]
     Active Substance: MONTELUKAST SODIUM
     Indication: Product used for unknown indication
     Route: 048
     Dates: start: 20220601

REACTIONS (3)
  - Cystic fibrosis [Recovering/Resolving]
  - Dermatitis allergic [Recovered/Resolved]
  - Abdominal pain [Recovering/Resolving]

NARRATIVE: CASE EVENT DATE: 20230807
